FAERS Safety Report 5949512-X (Version None)
Quarter: 2008Q4

REPORT INFORMATION
  Report Type: 
  Country: None (occurrence: None)
  Receive Date: 20081112
  Receipt Date: 20081105
  Transmission Date: 20090506
  Serious: Yes (Death)
  Sender: FDA-Public Use
  Company Number: PHBS2008CA06245

PATIENT
  Age: 23 Month
  Sex: Female
  Weight: 10.9 kg

DRUGS (8)
  1. CYCLOSPORINE [Suspect]
     Indication: BONE MARROW TRANSPLANT
  2. CYCLOSPORINE [Suspect]
     Indication: MYELODYSPLASTIC SYNDROME
  3. PREDNISONE TAB [Concomitant]
     Indication: MYELODYSPLASTIC SYNDROME
  4. CYCLOPHOSPHAMIDE [Concomitant]
     Indication: BONE MARROW TRANSPLANT
  5. FLUDARABINE PHOSPHATE [Concomitant]
     Indication: BONE MARROW TRANSPLANT
  6. ANTI-THYMOCYTE GLOBULIN NOS [Concomitant]
     Indication: BONE MARROW TRANSPLANT
  7. ANTI-THYMOCYTE GLOBULIN NOS [Concomitant]
     Indication: MYELODYSPLASTIC SYNDROME
  8. STEROIDS NOS [Concomitant]
     Indication: BONE MARROW TRANSPLANT

REACTIONS (3)
  - DRUG EFFECT DECREASED [None]
  - EPSTEIN-BARR VIRUS ASSOCIATED LYMPHOPROLIFERATIVE DISORDER [None]
  - EPSTEIN-BARR VIRUS INFECTION [None]
